FAERS Safety Report 7238452-4 (Version None)
Quarter: 2011Q1

REPORT INFORMATION
  Report Type: 
  Country: None (occurrence: None)
  Receive Date: 20110121
  Receipt Date: 20110113
  Transmission Date: 20110831
  Serious: Yes (Hospitalization)
  Sender: FDA-Public Use
  Company Number: ES-JNJFOC-20110104066

PATIENT
  Age: 58 Year
  Sex: Female

DRUGS (4)
  1. EUTIROX [Concomitant]
     Indication: HYPOTHYROIDISM
  2. TORSEMIDE [Concomitant]
     Indication: HYPERTENSION
  3. FLUOXETINE [Concomitant]
     Indication: DEPRESSION
  4. REMICADE [Suspect]
     Indication: PSORIASIS
     Route: 042

REACTIONS (1)
  - ACUTE MYOCARDIAL INFARCTION [None]
